FAERS Safety Report 10957221 (Version 1)
Quarter: 2015Q1

REPORT INFORMATION
  Report Type: Spontaneous
  Country: BR (occurrence: None)
  Receive Date: 20150324
  Receipt Date: 20150324
  Transmission Date: 20150721
  Serious: Yes (Other)
  Sender: FDA-Public Use
  Company Number: 2015SGN00268

PATIENT
  Age: 42 Year
  Sex: Female

DRUGS (4)
  1. ACYCLOVIR. [Concomitant]
     Active Substance: ACYCLOVIR
  2. PREDNISONE. [Concomitant]
     Active Substance: PREDNISONE
  3. ADCETRIS [Suspect]
     Active Substance: BRENTUXIMAB VEDOTIN
     Indication: HODGKIN^S DISEASE
     Route: 042
  4. FOLIC ACID. [Concomitant]
     Active Substance: FOLIC ACID

REACTIONS (4)
  - Hodgkin^s disease [None]
  - Weight increased [None]
  - Strabismus [None]
  - Pruritus generalised [None]
